FAERS Safety Report 4605047-8 (Version None)
Quarter: 2005Q1

REPORT INFORMATION
  Report Type: 
  Country: None (occurrence: None)
  Receive Date: 20050311
  Receipt Date: 20040315
  Transmission Date: 20050727
  Serious: Yes (Death, Life-Threatening, Hospitalization, Other)
  Sender: FDA-Public Use
  Company Number: US-BRISTOL-MYERS SQUIBB COMPANY-12533824

PATIENT
  Age: 72 Year
  Sex: Male
  Weight: 51 kg

DRUGS (7)
  1. CARBOPLATIN [Suspect]
     Indication: NON-SMALL CELL LUNG CANCER
     Dosage: DOSE = AUC 5
     Route: 042
     Dates: start: 20031222, end: 20040216
  2. WARFARIN SODIUM [Interacting]
     Indication: PULMONARY EMBOLISM
     Route: 048
     Dates: start: 20040213, end: 20040222
  3. XYOTAX [Interacting]
     Indication: NON-SMALL CELL LUNG CANCER
     Dosage: DOSE = 210 MG/M2
     Route: 042
     Dates: start: 20031222, end: 20040216
  4. COMPAZINE [Concomitant]
     Route: 048
  5. MESALAMINE [Concomitant]
     Route: 048
  6. VICODIN [Concomitant]
     Route: 048
  7. ATIVAN [Concomitant]
     Route: 048

REACTIONS (9)
  - ANAEMIA [None]
  - DRUG INTERACTION [None]
  - INTERNATIONAL NORMALISED RATIO INCREASED [None]
  - MALIGNANT NEOPLASM PROGRESSION [None]
  - MENTAL STATUS CHANGES [None]
  - METASTASES TO NERVOUS SYSTEM [None]
  - NON-SMALL CELL LUNG CANCER [None]
  - PROTHROMBIN TIME PROLONGED [None]
  - TUMOUR HAEMORRHAGE [None]
